FAERS Safety Report 9147454 (Version 2)
Quarter: 2013Q3

REPORT INFORMATION
  Report Type: Report from Study
  Country: US (occurrence: US)
  Receive Date: 20130307
  Receipt Date: 20130703
  Transmission Date: 20140515
  Serious: Yes (Other)
  Sender: FDA-Public Use
  Company Number: US-ABBOTT-13P-163-1055396-00

PATIENT
  Age: 56 Year
  Sex: Female
  Weight: 77.63 kg

DRUGS (6)
  1. HUMIRA [Suspect]
     Indication: RHEUMATOID ARTHRITIS
     Route: 058
     Dates: start: 2008, end: 201212
  2. MOBIC [Concomitant]
     Indication: RHEUMATOID ARTHRITIS
  3. AZULFIDINE [Concomitant]
     Indication: RHEUMATOID ARTHRITIS
  4. LEVOXYL [Concomitant]
     Indication: THYROID CANCER
  5. ATENOLOL [Concomitant]
     Indication: HYPERTENSION
  6. LIPITOR [Concomitant]
     Indication: BLOOD CHOLESTEROL INCREASED

REACTIONS (2)
  - Meniscus injury [Unknown]
  - Arthralgia [Unknown]
